FAERS Safety Report 12469730 (Version 2)
Quarter: 2016Q3

REPORT INFORMATION
  Report Type: Spontaneous
  Country: US (occurrence: US)
  Receive Date: 20160615
  Receipt Date: 20160812
  Transmission Date: 20161109
  Serious: Yes (Hospitalization, Other)
  Sender: FDA-Public Use
  Company Number: US-JAZZ-2016-US-010550

PATIENT
  Age: 41 Year
  Sex: Female

DRUGS (1)
  1. XYREM [Suspect]
     Active Substance: SODIUM OXYBATE
     Indication: PRODUCT USED FOR UNKNOWN INDICATION
     Route: 048

REACTIONS (10)
  - Tachycardia [Recovered/Resolved]
  - Adverse drug reaction [Unknown]
  - Suicide attempt [Unknown]
  - Irritability [Recovered/Resolved]
  - Agitation [Recovered/Resolved]
  - Respiratory depression [Recovered/Resolved]
  - Coma [Recovered/Resolved]
  - Drooling [Unknown]
  - Secretion discharge [Unknown]
  - Overdose [Unknown]

NARRATIVE: CASE EVENT DATE: 20160531
